FAERS Safety Report 16747298 (Version 1)
Quarter: 2019Q3

REPORT INFORMATION
  Report Type: Spontaneous
  Country: US (occurrence: US)
  Receive Date: 20190827
  Receipt Date: 20190827
  Transmission Date: 20191005
  Serious: Yes (Hospitalization)
  Sender: FDA-Public Use
  Company Number: US-AMERICAN REGENT INC-2019001827

PATIENT
  Age: 50 Year
  Sex: Male

DRUGS (19)
  1. MORPHINE [Suspect]
     Active Substance: MORPHINE
     Indication: PRODUCT USED FOR UNKNOWN INDICATION
     Dosage: UNK, INTERMITTENT
     Route: 065
  2. VANCOMYCIN [Concomitant]
     Active Substance: VANCOMYCIN
     Indication: SEPTIC SHOCK
     Dosage: UNK
     Route: 065
  3. AZITHROMYCIN ANHYDROUS. [Concomitant]
     Active Substance: AZITHROMYCIN ANHYDROUS
     Indication: PNEUMONIA
  4. PROPOFOL. [Concomitant]
     Active Substance: PROPOFOL
     Indication: MECHANICAL VENTILATION
  5. DEXMEDETOMIDINE HYDROCHLORIDE INJECTION (0517-0995-25) [Suspect]
     Active Substance: DEXMEDETOMIDINE HYDROCHLORIDE
     Indication: AGITATION
     Dosage: UNKNOWN; DAYS 4-9 OF HOSPITAL ADMISSION
     Route: 065
  6. FENTANYL. [Suspect]
     Active Substance: FENTANYL
     Indication: SEDATIVE THERAPY
     Dosage: UNK
     Route: 065
  7. MEROPENEM. [Concomitant]
     Active Substance: MEROPENEM
     Indication: LEPTOSPIROSIS
     Dosage: UNK
     Route: 065
  8. LORAZEPAM. [Suspect]
     Active Substance: LORAZEPAM
     Indication: SEDATIVE THERAPY
     Dosage: UNK
     Route: 065
  9. PIPERACILLIN/TAZOBACTAM [Concomitant]
     Active Substance: PIPERACILLIN SODIUM\TAZOBACTAM SODIUM
     Indication: SEPTIC SHOCK
     Dosage: UNK
     Route: 065
  10. AZITHROMYCIN ANHYDROUS. [Concomitant]
     Active Substance: AZITHROMYCIN ANHYDROUS
     Indication: SEPTIC SHOCK
     Dosage: UNK
     Route: 065
  11. PROPOFOL. [Concomitant]
     Active Substance: PROPOFOL
     Indication: SEDATIVE THERAPY
     Dosage: UNK
     Route: 065
  12. PIPERACILLIN/TAZOBACTAM [Concomitant]
     Active Substance: PIPERACILLIN SODIUM\TAZOBACTAM SODIUM
     Indication: PNEUMONIA
  13. MIDAZOLAM [Suspect]
     Active Substance: MIDAZOLAM HYDROCHLORIDE
     Indication: PRODUCT USED FOR UNKNOWN INDICATION
     Dosage: UNK
     Route: 065
  14. LORAZEPAM. [Suspect]
     Active Substance: LORAZEPAM
     Indication: MECHANICAL VENTILATION
  15. VANCOMYCIN [Concomitant]
     Active Substance: VANCOMYCIN
     Indication: PNEUMONIA
  16. LEVOFLOXACIN. [Concomitant]
     Active Substance: LEVOFLOXACIN
     Indication: LEPTOSPIROSIS
     Dosage: UNK
     Route: 065
  17. FENTANYL. [Suspect]
     Active Substance: FENTANYL
     Indication: MECHANICAL VENTILATION
  18. OSELTAMIVIR [Concomitant]
     Active Substance: OSELTAMIVIR
     Indication: SEPTIC SHOCK
     Dosage: UNK
     Route: 065
  19. OSELTAMIVIR [Concomitant]
     Active Substance: OSELTAMIVIR
     Indication: PNEUMONIA

REACTIONS (2)
  - Intestinal pseudo-obstruction [Recovering/Resolving]
  - Product use in unapproved indication [Unknown]
